FAERS Safety Report 7541282-7 (Version None)
Quarter: 2011Q2

REPORT INFORMATION
  Report Type: 
  Country: None (occurrence: None)
  Receive Date: 20110610
  Receipt Date: 20110603
  Transmission Date: 20111010
  Serious: Yes (Hospitalization, Other)
  Sender: FDA-Public Use
  Company Number: US-RB-023574-11

PATIENT
  Age: 48 Year
  Sex: Female

DRUGS (8)
  1. SEROQUEL [Suspect]
     Indication: BIPOLAR DISORDER
     Dosage: DOSING INFORMATION UNKNOWN
     Route: 065
  2. SEROQUEL [Suspect]
     Indication: POST-TRAUMATIC STRESS DISORDER
     Dosage: DOSING INFORMATION UNKNOWN
     Route: 065
  3. IBUPROPROFEN [Concomitant]
     Indication: BACK PAIN
     Dosage: DOSING INFORMATION UNKNOWN; AS NEEDED
     Route: 065
  4. CELEXA [Suspect]
     Indication: DEPRESSION
     Dosage: DOSING INFORMATION UNKNOWN
     Route: 065
  5. BENADRYL [Concomitant]
     Indication: TARDIVE DYSKINESIA
     Dosage: DOSING INFORMATION UNKNOWN
     Route: 065
  6. TRAZODONE HCL [Suspect]
     Indication: SLEEP DISORDER
     Dosage: DOSING INFORMATION UNKNOWN
     Route: 065
  7. NEXIUM [Concomitant]
     Indication: GASTROOESOPHAGEAL REFLUX DISEASE
     Dosage: DOSING INFORMATION UNKNOWN
     Route: 065
  8. SUBOXONE [Suspect]
     Indication: DRUG DEPENDENCE
     Dosage: SUBLINGUAL FILM- 2-4 MG DAILY
     Route: 060
     Dates: start: 20110201, end: 20110601

REACTIONS (12)
  - FATIGUE [None]
  - ASTHENIA [None]
  - MALAISE [None]
  - BLOOD IRON DECREASED [None]
  - PAIN [None]
  - MENTAL DISORDER [None]
  - ARTHRALGIA [None]
  - APATHY [None]
  - NASOPHARYNGITIS [None]
  - DEPRESSION [None]
  - ANAEMIA [None]
  - BACK PAIN [None]
